FAERS Safety Report 7815732-2 (Version None)
Quarter: 2011Q4

REPORT INFORMATION
  Report Type: 
  Country: None (occurrence: None)
  Receive Date: 20111012
  Receipt Date: 20110930
  Transmission Date: 20120403
  Serious: Yes (Congenital Anomaly, Other)
  Sender: FDA-Public Use
  Company Number: AUR-APL-2010-00712

PATIENT
  Sex: Female
  Weight: 2.79 kg

DRUGS (5)
  1. NELFINAVIR MESYLATE [Suspect]
     Indication: HIV INFECTION
     Dosage: TRANSPLACENTAL
     Route: 064
     Dates: start: 20060314, end: 20060613
  2. ZIDOVUDINE [Suspect]
     Indication: HIV INFECTION
     Dosage: TRANSPLACENTAL
     Route: 064
     Dates: start: 20060314
  3. LAMIVUDINE [Suspect]
     Indication: HIV INFECTION
     Dosage: TRANSPLACENTAL
     Route: 064
     Dates: start: 20060314
  4. RITONAVIR [Suspect]
     Indication: HIV INFECTION
     Dosage: TRANSPLACENTAL
     Route: 064
     Dates: start: 20060613
  5. LOPINAVIR (LOPINAVIR) [Suspect]
     Indication: HIV INFECTION
     Dosage: TRANSPLACENTAL
     Route: 064
     Dates: start: 20060613

REACTIONS (3)
  - MATERNAL DRUGS AFFECTING FOETUS [None]
  - TRISOMY 21 [None]
  - ATRIAL SEPTAL DEFECT [None]
